FAERS Safety Report 9220085 (Version 1)
Quarter: 2013Q2

REPORT INFORMATION
  Report Type: Spontaneous
  Country: JP (occurrence: JP)
  Receive Date: 20130409
  Receipt Date: 20130409
  Transmission Date: 20140414
  Serious: Yes (Death)
  Sender: FDA-Public Use
  Company Number: JP-ROCHE-1211081

PATIENT
  Age: 19 Year
  Sex: Male

DRUGS (2)
  1. AVASTIN [Suspect]
     Indication: MALIGNANT GLIOMA
     Dosage: DOSAGE IS UNCERTAIN.
     Route: 041
  2. AVASTIN [Suspect]
     Indication: OFF LABEL USE

REACTIONS (1)
  - Malignant glioma [Fatal]
